FAERS Safety Report 9888418 (Version 1)
Quarter: 2014Q1

REPORT INFORMATION
  Report Type: Spontaneous
  Country: US (occurrence: US)
  Receive Date: 20140211
  Receipt Date: 20140211
  Transmission Date: 20141002
  Serious: No
  Sender: FDA-Public Use
  Company Number: US-PFIZER INC-2014037371

PATIENT
  Age: 47 Year
  Sex: Male

DRUGS (3)
  1. VENLAFAXINE HCL [Suspect]
     Dosage: UNK
  2. REMERON [Suspect]
     Dosage: UNK
  3. SEROQUEL [Suspect]
     Dosage: UNK

REACTIONS (1)
  - Drug screen positive [Unknown]
